FAERS Safety Report 9402331 (Version 1)
Quarter: 2013Q3

REPORT INFORMATION
  Report Type: Spontaneous
  Country: CN (occurrence: CN)
  Receive Date: 20130716
  Receipt Date: 20130716
  Transmission Date: 20140515
  Serious: Yes (Other)
  Sender: FDA-Public Use
  Company Number: CN-BAXTER-2013BAX026408

PATIENT
  Age: 72 Year
  Sex: Male
  Weight: 50 kg

DRUGS (2)
  1. 20% MANNITOL INJECTION [Suspect]
     Indication: POST PROCEDURAL COMPLICATION
     Route: 041
     Dates: start: 20121012, end: 20121013
  2. 20% MANNITOL INJECTION [Suspect]
     Indication: OEDEMA

REACTIONS (6)
  - Dizziness [Recovering/Resolving]
  - Choking [Recovering/Resolving]
  - Chest discomfort [Recovering/Resolving]
  - Dyspnoea [Recovering/Resolving]
  - Cyanosis [Recovering/Resolving]
  - Oropharyngeal discomfort [Recovering/Resolving]
